FAERS Safety Report 5927217-9 (Version None)
Quarter: 2008Q4

REPORT INFORMATION
  Report Type: 
  Country: None (occurrence: None)
  Receive Date: 20081022
  Receipt Date: 20081010
  Transmission Date: 20090506
  Serious: Yes (Hospitalization, Other)
  Sender: FDA-Public Use
  Company Number: US-PFIZER INC-2008086113

PATIENT
  Sex: Female
  Weight: 86.2 kg

DRUGS (2)
  1. LYRICA [Suspect]
     Indication: BACK DISORDER
     Dates: start: 20081007, end: 20081008
  2. PREVACID [Concomitant]

REACTIONS (3)
  - DIZZINESS [None]
  - DYSPNOEA [None]
  - PALPITATIONS [None]
